FAERS Safety Report 5401925-0 (Version None)
Quarter: 2007Q3

REPORT INFORMATION
  Report Type: 
  Country: None (occurrence: None)
  Receive Date: 20070726
  Receipt Date: 20070724
  Transmission Date: 20080115
  Serious: Yes (Hospitalization)
  Sender: FDA-Public Use
  Company Number: THQ2007A00724

PATIENT
  Age: 74 Year
  Sex: Male

DRUGS (5)
  1. LEUPROLIDE ACETATE [Suspect]
     Indication: PROSTATE CANCER
     Dosage: 22.5 MG (22.5 MG, 1 IN 3 M) INJECTION
     Dates: start: 20061011
  2. ZOLEDRONIC ACID [Concomitant]
  3. RAMIPRIL [Concomitant]
  4. FLUVOXAMINE MALEATE [Concomitant]
  5. ENOXAPARIN SODIUM [Concomitant]

REACTIONS (5)
  - GASTRIC ULCER [None]
  - HAEMATEMESIS [None]
  - MELAENA [None]
  - OESOPHAGEAL CANDIDIASIS [None]
  - OESOPHAGEAL ULCER [None]
